FAERS Safety Report 8314677-1 (Version None)
Quarter: 2012Q2

REPORT INFORMATION
  Report Type: 
  Country: None (occurrence: None)
  Receive Date: 20120426
  Receipt Date: 20120416
  Transmission Date: 20120825
  Serious: No
  Sender: FDA-Public Use
  Company Number: US-ELI_LILLY_AND_COMPANY-US201203006169

PATIENT
  Sex: Female
  Weight: 102.49 kg

DRUGS (3)
  1. TAMOXIFEN CITRATE [Interacting]
     Dosage: UNK, UNKNOWN
     Dates: start: 20101001
  2. CYMBALTA [Suspect]
     Indication: DEPRESSION
     Dosage: 60 MG, QD
     Route: 048
     Dates: start: 20111114
  3. CYMBALTA [Interacting]
     Dosage: 90 MG, QD
     Route: 048
     Dates: end: 20120312

REACTIONS (1)
  - DRUG INTERACTION [None]
